FAERS Safety Report 7641812-0 (Version None)
Quarter: 2011Q3

REPORT INFORMATION
  Report Type: 
  Country: None (occurrence: None)
  Receive Date: 20110722
  Receipt Date: 20110713
  Transmission Date: 20111222
  Serious: Yes (Hospitalization)
  Sender: FDA-Public Use
  Company Number: 2011SP028213

PATIENT
  Age: 57 Year
  Sex: Male
  Weight: 65 kg

DRUGS (7)
  1. PEG-INTRON [Suspect]
     Indication: HEPATITIS C
     Dosage: 50 MCG; QW; SC
     Route: 058
     Dates: start: 20100126
  2. PROPRANOLOL [Concomitant]
  3. NEORECORMON [Concomitant]
  4. DIHYDROERGOTAMINE MESYLATE [Concomitant]
  5. VITAMIN B-12 [Concomitant]
  6. RIBAVIRIN [Suspect]
     Indication: HEPATITIS C
     Dosage: 1000 MG; QD; PO
     Route: 048
     Dates: start: 20100126
  7. OMEPRAZOLE [Concomitant]

REACTIONS (17)
  - CARDIAC MURMUR [None]
  - INTERSTITIAL LUNG DISEASE [None]
  - BLOOD PRESSURE DIASTOLIC DECREASED [None]
  - PLATELET COUNT DECREASED [None]
  - ALVEOLITIS [None]
  - RESPIRATORY DISTRESS [None]
  - MYCOPLASMA INFECTION [None]
  - INFECTION IN AN IMMUNOCOMPROMISED HOST [None]
  - DIARRHOEA [None]
  - CLOSTRIDIAL INFECTION [None]
  - HYPOXIA [None]
  - SEPSIS [None]
  - ANAEMIA MACROCYTIC [None]
  - NO THERAPEUTIC RESPONSE [None]
  - BACTERIAL INFECTION [None]
  - CHLAMYDIAL INFECTION [None]
  - LEGIONELLA INFECTION [None]
